FAERS Safety Report 5235662-2 (Version None)
Quarter: 2007Q1

REPORT INFORMATION
  Report Type: 
  Country: None (occurrence: None)
  Receive Date: 20070212
  Receipt Date: 20070205
  Transmission Date: 20070707
  Serious: Yes (Other)
  Sender: FDA-Public Use
  Company Number: JP-JPN-A200700373

PATIENT
  Sex: Female

DRUGS (3)
  1. PAXIL [Suspect]
     Indication: DRUG USE FOR UNKNOWN INDICATION
     Route: 048
     Dates: start: 20030101
  2. DEPAS [Concomitant]
     Route: 048
  3. LEXOTAN [Concomitant]
     Route: 048

REACTIONS (2)
  - AGGRESSION [None]
  - SUICIDE ATTEMPT [None]
